FAERS Safety Report 5355091-0 (Version None)
Quarter: 2007Q2

REPORT INFORMATION
  Report Type: 
  Country: None (occurrence: None)
  Receive Date: 20070613
  Receipt Date: 20070605
  Transmission Date: 20071010
  Serious: Yes (Hospitalization, Other)
  Sender: FDA-Public Use
  Company Number: PHBS2007BR09116

PATIENT
  Age: 97 Year
  Sex: Female
  Weight: 50 kg

DRUGS (7)
  1. DIOVAN [Suspect]
     Indication: HYPERTENSION
     Dosage: 80 MG/DAY
     Route: 048
     Dates: start: 20070201
  2. SYNTHROID [Concomitant]
     Indication: HYPOTHYROIDISM
     Dosage: 100 MG, QD
  3. AMLODIPINE [Concomitant]
     Dosage: 5 MG, QD
  4. SERTRALINE [Concomitant]
     Indication: ANTIDEPRESSANT THERAPY
     Dosage: 1 TABLET/DAY
     Route: 048
  5. PANTOPRAZOLE SODIUM [Concomitant]
     Indication: GASTRIC DISORDER
     Dosage: 140 MG, QD
  6. LEVAQUIN [Concomitant]
     Indication: LUNG DISORDER
     Dosage: 500 MG, QD
     Route: 048
  7. SELOZOK [Concomitant]
     Indication: LUNG DISORDER
     Dosage: 50 MG, QD
     Route: 048

REACTIONS (3)
  - AORTIC ANEURYSM [None]
  - HYPERTENSION [None]
  - PAIN [None]
